FAERS Safety Report 25328382 (Version 1)
Quarter: 2025Q2

REPORT INFORMATION
  Report Type: Spontaneous
  Country: US (occurrence: US)
  Receive Date: 20250518
  Receipt Date: 20250518
  Transmission Date: 20250717
  Serious: No
  Sender: ABBVIE
  Company Number: US-ABBVIE-6283999

PATIENT
  Sex: Female

DRUGS (1)
  1. HUMIRA [Suspect]
     Active Substance: ADALIMUMAB
     Indication: Crohn^s disease
     Route: 058

REACTIONS (6)
  - Arthralgia [Unknown]
  - Injection site erythema [Unknown]
  - Injection site urticaria [Unknown]
  - Abdominal pain [Unknown]
  - Flank pain [Unknown]
  - Injection site pain [Unknown]
